FAERS Safety Report 4965373-X (Version None)
Quarter: 2006Q2

REPORT INFORMATION
  Report Type: 
  Country: None (occurrence: None)
  Receive Date: 20060406
  Receipt Date: 20060223
  Transmission Date: 20061013
  Serious: Yes (Hospitalization)
  Sender: FDA-Public Use
  Company Number: US-MERCK-0602USA05432

PATIENT
  Age: 59 Year
  Sex: Male
  Weight: 80 kg

DRUGS (25)
  1. PREDNISONE [Concomitant]
     Route: 065
  2. PROMETHAZINE [Concomitant]
     Route: 065
  3. LISINOPRIL [Concomitant]
     Route: 065
  4. NITRO [Concomitant]
     Route: 065
  5. ULTRAM [Concomitant]
     Route: 065
  6. DOXEPIN HYDROCHLORIDE [Concomitant]
     Route: 065
  7. PREVACID [Concomitant]
     Route: 065
  8. VIOXX [Suspect]
     Indication: RHEUMATOID ARTHRITIS
     Route: 048
     Dates: start: 19990601, end: 20040901
  9. PRILOSEC [Concomitant]
     Route: 048
  10. NEORAL [Concomitant]
     Route: 065
  11. PAXIL [Concomitant]
     Route: 065
  12. GLYBURIDE [Concomitant]
     Route: 065
  13. METOPROLOL [Concomitant]
     Route: 065
  14. NEURONTIN [Concomitant]
     Route: 065
  15. SINGULAIR [Concomitant]
     Route: 048
  16. GUAIFENESIN AND HYDROCODONE BITARTRATE [Concomitant]
     Route: 065
  17. ENBREL [Concomitant]
     Route: 065
  18. CLONAZEPAM [Concomitant]
     Route: 065
  19. FLEXERIL [Concomitant]
     Route: 048
  20. LIPITOR [Concomitant]
     Route: 065
  21. EFFEXOR [Concomitant]
     Route: 065
  22. ACTOS [Concomitant]
     Route: 065
  23. HUMULIN [Concomitant]
     Route: 065
  24. BENZONATATE [Concomitant]
     Route: 065
  25. GUIATUSS [Concomitant]
     Route: 065

REACTIONS (14)
  - ACUTE MYOCARDIAL INFARCTION [None]
  - BRONCHOPNEUMONIA [None]
  - CLOSTRIDIAL INFECTION [None]
  - DIABETIC FOOT INFECTION [None]
  - FIBROMYALGIA [None]
  - HERPES ZOSTER [None]
  - INTERVERTEBRAL DISC PROTRUSION [None]
  - NEURALGIA [None]
  - OSTEOMYELITIS [None]
  - PNEUMONIA [None]
  - ROAD TRAFFIC ACCIDENT [None]
  - ROTATOR CUFF SYNDROME [None]
  - SPINAL COLUMN STENOSIS [None]
  - SPINAL OSTEOARTHRITIS [None]
